FAERS Safety Report 9938705 (Version 2)
Quarter: 2014Q2

REPORT INFORMATION
  Report Type: Spontaneous
  Country: US (occurrence: US)
  Receive Date: 20140303
  Receipt Date: 20140528
  Transmission Date: 20141212
  Serious: Yes (Other)
  Sender: FDA-Public Use
  Company Number: US-BEH-2014040843

PATIENT
  Sex: Female
  Weight: 69 kg

DRUGS (20)
  1. PRIVIGEN [Suspect]
     Indication: SELECTIVE IGA IMMUNODEFICIENCY
     Route: 042
  2. PRIVIGEN [Suspect]
     Indication: AUTOIMMUNE DISORDER
     Route: 042
  3. PRIVIGEN [Suspect]
     Route: 058
  4. PRIVIGEN [Suspect]
     Route: 058
  5. TRAMADOL [Concomitant]
  6. DONEPEZIL [Concomitant]
  7. ADVAIR [Concomitant]
  8. AGGRENOX [Concomitant]
  9. XANAX [Concomitant]
  10. LIPITOR [Concomitant]
  11. MELOXICAM [Concomitant]
  12. PRILOSEC [Concomitant]
  13. LEXAPRO [Concomitant]
  14. ZETIA [Concomitant]
  15. ARICEPT [Concomitant]
  16. ACETAMINOPHEN [Concomitant]
  17. DIPHENHYDRAMINE [Concomitant]
  18. SODIUM CHLORIDE [Concomitant]
  19. HEPARIN [Concomitant]
  20. EPIPEN [Concomitant]

REACTIONS (1)
  - Pneumonia [Unknown]
